FAERS Safety Report 9626502 (Version 1)
Quarter: 2013Q4

REPORT INFORMATION
  Report Type: Spontaneous
  Country: US (occurrence: None)
  Receive Date: 20131015
  Receipt Date: 20131015
  Transmission Date: 20140711
  Serious: Yes (Disabling)
  Sender: FDA-Public Use
  Company Number: None

PATIENT
  Age: 53 Year
  Sex: Male
  Weight: 102.06 kg

DRUGS (2)
  1. BUPROPION [Suspect]
     Indication: DEPRESSION
     Route: 048
  2. BUPROPION [Suspect]
     Route: 048

REACTIONS (5)
  - Feeling abnormal [None]
  - Sensory disturbance [None]
  - Thinking abnormal [None]
  - Activities of daily living impaired [None]
  - Decreased interest [None]
